FAERS Safety Report 16785118 (Version 1)
Quarter: 2019Q3

REPORT INFORMATION
  Report Type: Spontaneous
  Country: US (occurrence: US)
  Receive Date: 20190909
  Receipt Date: 20190909
  Transmission Date: 20191005
  Serious: Yes (Hospitalization)
  Sender: FDA-Public Use
  Company Number: US-AMGEN-USASP2019144347

PATIENT
  Age: 56 Year
  Sex: Female

DRUGS (1)
  1. NEULASTA [Suspect]
     Active Substance: PEGFILGRASTIM
     Indication: NEUTROPENIA
     Dosage: UNK
     Route: 065
     Dates: start: 201901, end: 201901

REACTIONS (6)
  - Wheezing [Unknown]
  - Insomnia [Unknown]
  - Chest X-ray abnormal [Unknown]
  - Bone pain [Not Recovered/Not Resolved]
  - Gait disturbance [Unknown]
  - Bone marrow disorder [Unknown]

NARRATIVE: CASE EVENT DATE: 2019
